FAERS Safety Report 10541769 (Version 1)
Quarter: 2014Q4

REPORT INFORMATION
  Report Type: Spontaneous
  Country: PL (occurrence: PL)
  Receive Date: 20141024
  Receipt Date: 20141024
  Transmission Date: 20150529
  Serious: Yes (Other)
  Sender: FDA-Public Use
  Company Number: PL-BAYER-2014-155394

PATIENT
  Age: 33 Year
  Sex: Female

DRUGS (1)
  1. MIRENA [Suspect]
     Active Substance: LEVONORGESTREL
     Dosage: 20 MCG/24HR, CONT
     Route: 015
     Dates: start: 20140422, end: 20140723

REACTIONS (4)
  - Feeling hot [Unknown]
  - Pain [Unknown]
  - Asthenia [Unknown]
  - Device dislocation [Unknown]

NARRATIVE: CASE EVENT DATE: 20140422
